FAERS Safety Report 17230069 (Version 1)
Quarter: 2020Q1

REPORT INFORMATION
  Report Type: Spontaneous
  Country: CN (occurrence: CN)
  Receive Date: 20200103
  Receipt Date: 20200103
  Transmission Date: 20200409
  Serious: Yes (Hospitalization)
  Sender: FDA-Public Use
  Company Number: CN-OTSUKA-2020_000049

PATIENT
  Age: 56 Year
  Sex: Female

DRUGS (4)
  1. RABEPRAZOLE SODIUM. [Suspect]
     Active Substance: RABEPRAZOLE SODIUM
     Indication: PEPTIC ULCER
     Dosage: 10 MG, QD
     Route: 048
     Dates: start: 20190801, end: 20190805
  2. SAMSCA [Suspect]
     Active Substance: TOLVAPTAN
     Indication: POLYURIA
     Dosage: 15 MG, QD
     Route: 048
     Dates: start: 20190801, end: 20190805
  3. VALSARTAN. [Suspect]
     Active Substance: VALSARTAN
     Indication: HYPERTENSION
     Dosage: 1 DF, QD
     Route: 048
     Dates: start: 20190801, end: 20190805
  4. TRIMEBUTINE MALEATE [Suspect]
     Active Substance: TRIMEBUTINE MALEATE
     Indication: PEPTIC ULCER
     Dosage: 0.1 G, TID
     Route: 048
     Dates: start: 20190801, end: 20190805

REACTIONS (2)
  - Product use in unapproved indication [Unknown]
  - Hypotension [Recovering/Resolving]

NARRATIVE: CASE EVENT DATE: 20190803
